FAERS Safety Report 5476338-6 (Version None)
Quarter: 2007Q4

REPORT INFORMATION
  Report Type: 
  Country: None (occurrence: None)
  Receive Date: 20071003
  Receipt Date: 20070921
  Transmission Date: 20080405
  Serious: Yes (Other)
  Sender: FDA-Public Use
  Company Number: US-PFIZER INC-2007054014

PATIENT
  Age: 30 Year
  Sex: Male
  Weight: 74.4 kg

DRUGS (3)
  1. CHANTIX [Interacting]
     Indication: SMOKING CESSATION THERAPY
     Route: 048
     Dates: start: 20061214, end: 20070123
  2. ZOLOFT [Suspect]
     Indication: ANXIETY
     Route: 048
  3. CONCERTA [Interacting]
     Indication: ATTENTION DEFICIT/HYPERACTIVITY DISORDER
     Route: 048
     Dates: start: 20061003, end: 20070227

REACTIONS (6)
  - ADVERSE DRUG REACTION [None]
  - ANXIETY [None]
  - ATTENTION DEFICIT/HYPERACTIVITY DISORDER [None]
  - DRUG INEFFECTIVE [None]
  - DRUG INTERACTION [None]
  - INSOMNIA [None]
